FAERS Safety Report 11807778 (Version 2)
Quarter: 2016Q1

REPORT INFORMATION
  Report Type: Other
  Country: IT (occurrence: IT)
  Receive Date: 20151207
  Receipt Date: 20160122
  Transmission Date: 20160525
  Serious: Yes (Hospitalization)
  Sender: FDA-Public Use
  Company Number: IT-MYLANLABS-2015M1042395

PATIENT

DRUGS (3)
  1. HARVONI [Suspect]
     Active Substance: LEDIPASVIR\SOFOSBUVIR
     Indication: HEPATITIS C
     Dosage: 490 MG DAILY
     Route: 048
     Dates: start: 20150917
  2. CARDIOASPIRIN [Suspect]
     Active Substance: ASPIRIN
     Indication: PROPHYLAXIS
     Dosage: 100 MG DAILY
     Route: 048
     Dates: start: 20000101
  3. ATENOLOL. [Suspect]
     Active Substance: ATENOLOL
     Indication: ATRIAL FIBRILLATION
     Dosage: 25 MG DAILY
     Route: 048
     Dates: start: 20150901

REACTIONS (1)
  - Ischaemic stroke [Recovering/Resolving]

NARRATIVE: CASE EVENT DATE: 20151116
